FAERS Safety Report 12670289 (Version 1)
Quarter: 2016Q3

REPORT INFORMATION
  Report Type: Spontaneous
  Country: AU (occurrence: AU)
  Receive Date: 20160821
  Receipt Date: 20160821
  Transmission Date: 20161109
  Serious: Yes (Hospitalization)
  Sender: FDA-Public Use
  Company Number: AU-009507513-1608AUS006136

PATIENT
  Age: 4 Year
  Sex: Female
  Weight: 20 kg

DRUGS (6)
  1. ADVANTAN [Suspect]
     Active Substance: CORTICOSTEROID NOS
     Dosage: UNK
     Route: 061
     Dates: end: 20160307
  2. ZYRTEC [Concomitant]
     Active Substance: CETIRIZINE HYDROCHLORIDE
  3. CLARATYNE [Concomitant]
     Active Substance: LORATADINE
  4. ELOCON [Suspect]
     Active Substance: MOMETASONE FUROATE
     Dosage: UNK UNK, TID
     Route: 061
     Dates: end: 20160307
  5. HYDROCORTISONE. [Suspect]
     Active Substance: HYDROCORTISONE
     Dosage: UNK
     Route: 061
     Dates: start: 20110315, end: 20160307
  6. DAIVOBET [Concomitant]
     Active Substance: BETAMETHASONE DIPROPIONATE\CALCIPOTRIENE

REACTIONS (4)
  - Pruritus [Not Recovered/Not Resolved]
  - Insomnia [Not Recovered/Not Resolved]
  - Wound secretion [Not Recovered/Not Resolved]
  - Erythema [Not Recovered/Not Resolved]

NARRATIVE: CASE EVENT DATE: 20160315
